FAERS Safety Report 9383697 (Version 1)
Quarter: 2013Q3

REPORT INFORMATION
  Report Type: Spontaneous
  Country: JP (occurrence: JP)
  Receive Date: 20130704
  Receipt Date: 20130704
  Transmission Date: 20140515
  Serious: Yes (Other)
  Sender: FDA-Public Use
  Company Number: JP-JNJFOC-20130608232

PATIENT
  Age: 74 Year
  Sex: Male
  Weight: 57 kg

DRUGS (11)
  1. REMICADE [Suspect]
     Indication: PUSTULAR PSORIASIS
     Dosage: FIRST DOSE
     Route: 042
     Dates: start: 20130606
  2. NEORAL [Concomitant]
     Indication: PUSTULAR PSORIASIS
     Dosage: 200MG, 100 MG
     Route: 048
     Dates: start: 20130524, end: 20130605
  3. PREDNISOLONE [Concomitant]
     Indication: PUSTULAR PSORIASIS
     Route: 048
     Dates: start: 20130604, end: 20130607
  4. PREDNISOLONE [Concomitant]
     Indication: PUSTULAR PSORIASIS
     Route: 048
     Dates: start: 20130531, end: 20130603
  5. PREDNISOLONE [Concomitant]
     Indication: PUSTULAR PSORIASIS
     Route: 048
     Dates: start: 20130527, end: 20130530
  6. PREDNISOLONE [Concomitant]
     Indication: PUSTULAR PSORIASIS
     Dosage: 20 MG, 10 MG
     Route: 048
     Dates: start: 20130524, end: 20130526
  7. ANPLAG [Concomitant]
     Indication: ANGINA PECTORIS
     Dosage: 300 MG, 100 MG
     Route: 048
     Dates: start: 20130527
  8. BAYASPIRIN [Concomitant]
     Indication: ANGINA PECTORIS
     Route: 048
     Dates: start: 20130527
  9. NEXIUM [Concomitant]
     Indication: GASTROOESOPHAGEAL REFLUX DISEASE
     Route: 048
     Dates: start: 20130603
  10. NORVASC [Concomitant]
     Indication: HYPERTENSION
     Route: 048
  11. ATARAX-P [Concomitant]
     Indication: PRURITUS
     Route: 048

REACTIONS (5)
  - Atrioventricular block second degree [Unknown]
  - Myocardial infarction [Unknown]
  - Infusion related reaction [Recovered/Resolved]
  - Bundle branch block right [Unknown]
  - Left ventricular hypertrophy [Unknown]
